FAERS Safety Report 5093512-1 (Version None)
Quarter: 2006Q3

REPORT INFORMATION
  Report Type: 
  Country: None (occurrence: None)
  Receive Date: 20060829
  Receipt Date: 20060113
  Transmission Date: 20061208
  Serious: Yes (Other)
  Sender: FDA-Public Use
  Company Number: 2006009523

PATIENT
  Age: 22 Year
  Sex: Female

DRUGS (3)
  1. BEXTRA [Suspect]
     Indication: DRUG USE FOR UNKNOWN INDICATION
     Dosage: 20 MG, 1 AS NECESSARY, ORAL
     Route: 049
     Dates: start: 20030416
  2. VICODIN [Concomitant]
  3. PENICILLIN-VK [Concomitant]

REACTIONS (4)
  - DRUG HYPERSENSITIVITY [None]
  - PILOERECTION [None]
  - PRURITUS [None]
  - STEVENS-JOHNSON SYNDROME [None]
